FAERS Safety Report 6018220-1 (Version None)
Quarter: 2008Q4

REPORT INFORMATION
  Report Type: 
  Country: None (occurrence: None)
  Receive Date: 20081223
  Receipt Date: 20081216
  Transmission Date: 20090506
  Serious: Yes (Hospitalization, Other)
  Sender: FDA-Public Use
  Company Number: US-ELI_LILLY_AND_COMPANY-US200809003510

PATIENT
  Sex: Female
  Weight: 105.67 kg

DRUGS (3)
  1. BYETTA [Suspect]
     Indication: TYPE 2 DIABETES MELLITUS
     Dosage: 5 UG, 2/D
     Route: 058
     Dates: start: 20060901, end: 20061101
  2. BYETTA [Suspect]
     Dosage: 10 UG, 2/D
     Route: 058
     Dates: start: 20061101, end: 20080701
  3. HUMULIN N [Concomitant]
     Indication: TYPE 2 DIABETES MELLITUS
     Dosage: 30 U, 2/D

REACTIONS (2)
  - BREAST CANCER [None]
  - WEIGHT DECREASED [None]
